FAERS Safety Report 8906184 (Version 1)
Quarter: 2012Q4

REPORT INFORMATION
  Report Type: Spontaneous
  Country: US (occurrence: None)
  Receive Date: 20121112
  Receipt Date: 20121112
  Transmission Date: 20130627
  Serious: No
  Sender: FDA-Public Use
  Company Number: None

PATIENT
  Sex: Female

DRUGS (4)
  1. LACOSAMIDE [Suspect]
     Indication: EPILEPSY
     Route: 048
     Dates: start: 2011, end: 20120715
  2. TOPIRAMATE [Concomitant]
  3. FELBAMATE [Concomitant]
  4. VAGUS NERVE STIMULATOR [Concomitant]

REACTIONS (1)
  - Rash [None]
